FAERS Safety Report 18472088 (Version 5)
Quarter: 2022Q4

REPORT INFORMATION
  Report Type: Report from Study
  Country: FR (occurrence: FR)
  Receive Date: 20201106
  Receipt Date: 20221012
  Transmission Date: 20230113
  Serious: Yes (Hospitalization, Other)
  Sender: FDA-Public Use
  Company Number: FR-AMGEN-FRACT2020177882

PATIENT
  Age: 71 Year
  Sex: Female
  Weight: 85 kg

DRUGS (9)
  1. PANITUMUMAB [Suspect]
     Active Substance: PANITUMUMAB
     Indication: Colorectal cancer metastatic
     Dosage: 510 MILLIGRAM (CUMULATIVE DOSE SINCE THE FIRST ADMINISTRATION: 1530 MG)
     Route: 042
     Dates: start: 20200917
  2. OXALIPLATIN [Suspect]
     Active Substance: OXALIPLATIN
     Indication: Colorectal cancer metastatic
     Dosage: 168 MILLIGRAM (CUMULATIVE DOSE SINCE THE FIRST ADMINISTRATION: 502.5 MG)
     Route: 042
     Dates: start: 20200917
  3. FLUOROURACIL [Suspect]
     Active Substance: FLUOROURACIL
     Indication: Colorectal cancer metastatic
     Dosage: 800 MILLIGRAM / CUMULATIVE DOSE SINCE THE FIRST ADMINISTRATION: 2400 MG (BOLUS)
     Route: 040
     Dates: start: 20200917
  4. FLUOROURACIL [Suspect]
     Active Substance: FLUOROURACIL
     Dosage: CUMULATIVE DOSE SINCE THE FIRST ADMINISTRATION: 14175 MG) (CONTINUOUS)
     Route: 042
     Dates: start: 20200917
  5. FLUOROURACIL [Suspect]
     Active Substance: FLUOROURACIL
     Dosage: 800 MILLIGRAM (BOLUS)
     Route: 040
     Dates: start: 20201022
  6. FLUOROURACIL [Suspect]
     Active Substance: FLUOROURACIL
     Dosage: 4725 MILLIGRAM (CONTINUOUS)
     Route: 042
     Dates: start: 20201022
  7. LEUCOVORIN [Suspect]
     Active Substance: LEUCOVORIN
     Indication: Colorectal cancer metastatic
     Dosage: CUMULATIVE DOSE SINCE THE FIRST ADMINISTRATION: 1185 MG
     Route: 065
     Dates: start: 20200917
  8. LEUCOVORIN [Suspect]
     Active Substance: LEUCOVORIN
     Dosage: 395 MILLIGRAM (PRIOR TO SAE)
     Route: 042
     Dates: start: 20201022
  9. IRINOTECAN [Suspect]
     Active Substance: IRINOTECAN
     Indication: Colorectal cancer metastatic
     Dosage: 300 MILLIGRAM
     Route: 065
     Dates: start: 20200917, end: 20200917

REACTIONS (2)
  - Febrile neutropenia [Recovered/Resolved]
  - Clostridium difficile colitis [Recovered/Resolved]

NARRATIVE: CASE EVENT DATE: 20201029
